FAERS Safety Report 17781285 (Version 1)
Quarter: 2020Q2

REPORT INFORMATION
  Report Type: Spontaneous
  Country: US (occurrence: US)
  Receive Date: 20200513
  Receipt Date: 20200513
  Transmission Date: 20200714
  Serious: Yes (Hospitalization)
  Sender: FDA-Public Use
  Company Number: None

PATIENT
  Age: 72 Year
  Sex: Male

DRUGS (1)
  1. CAPECITABINE 500 MG TABLET [Suspect]
     Active Substance: CAPECITABINE
     Route: 048

REACTIONS (4)
  - Decreased appetite [None]
  - Pyrexia [None]
  - Pruritus [None]
  - Asthenia [None]

NARRATIVE: CASE EVENT DATE: 20200513
